FAERS Safety Report 11946786 (Version 1)
Quarter: 2016Q1

REPORT INFORMATION
  Report Type: Report from Study
  Country: US (occurrence: US)
  Receive Date: 20160125
  Receipt Date: 20160125
  Transmission Date: 20160526
  Serious: No
  Sender: FDA-Public Use
  Company Number: US-AMGEN-USASL2015139840

PATIENT
  Age: 47 Year
  Sex: Female

DRUGS (1)
  1. REPATHA [Suspect]
     Active Substance: EVOLOCUMAB
     Indication: TYPE IIA HYPERLIPIDAEMIA
     Dosage: 140 MG/ML, Q2WK
     Route: 065
     Dates: start: 20151215

REACTIONS (6)
  - Influenza like illness [Recovered/Resolved]
  - Bone pain [Unknown]
  - Pruritus generalised [Unknown]
  - Headache [Recovered/Resolved]
  - Myalgia [Unknown]
  - Feeling abnormal [Unknown]

NARRATIVE: CASE EVENT DATE: 2015
